FAERS Safety Report 4708539-6 (Version None)
Quarter: 2005Q3

REPORT INFORMATION
  Report Type: 
  Country: None (occurrence: None)
  Receive Date: 20050707
  Receipt Date: 20050624
  Transmission Date: 20060218
  Serious: Yes (Life-Threatening, Hospitalization)
  Sender: FDA-Public Use
  Company Number: FR-GLAXOSMITHKLINE-B0386343A

PATIENT
  Age: 34 Year
  Sex: Female
  Weight: 52 kg

DRUGS (10)
  1. ONDANSETRON [Suspect]
     Dosage: 8MG CYCLIC
     Route: 042
     Dates: start: 20050411, end: 20050525
  2. ADRIABLASTIN [Suspect]
     Indication: SYNOVIAL SARCOMA
     Dosage: 20MGM2 PER DAY
     Route: 042
     Dates: start: 20050411, end: 20050525
  3. HOLOXAN [Suspect]
     Indication: SYNOVIAL SARCOMA
     Dosage: 2.5GM2 PER DAY
     Route: 042
     Dates: start: 20050411, end: 20050525
  4. UROMITEXAN [Suspect]
     Indication: PROPHYLAXIS
     Dosage: 2.5GM2 PER DAY
     Route: 042
     Dates: start: 20050411, end: 20050525
  5. SOLUDECADRON [Suspect]
     Dosage: 20MG PER DAY
     Route: 042
     Dates: start: 20050411, end: 20050416
  6. DETICENE [Suspect]
     Indication: SYNOVIAL SARCOMA
     Dosage: 300MGM2 PER DAY
     Route: 042
     Dates: start: 20050411, end: 20050525
  7. SOLU-MEDROL [Concomitant]
     Dosage: 60MG SEE DOSAGE TEXT
     Route: 042
     Dates: start: 20050502, end: 20050525
  8. LARGACTIL [Concomitant]
     Dosage: .5UNIT PER DAY
     Route: 042
     Dates: start: 20050503, end: 20050503
  9. ARANESP [Concomitant]
     Dosage: 150MG WEEKLY
     Route: 042
     Dates: start: 20050503
  10. NEULASTA [Concomitant]
     Dosage: 6MG SEE DOSAGE TEXT
     Route: 058
     Dates: start: 20050415, end: 20050515

REACTIONS (23)
  - ABDOMINAL DISTENSION [None]
  - ABDOMINAL PAIN UPPER [None]
  - ANURIA [None]
  - ASCITES [None]
  - BRAIN OEDEMA [None]
  - BUDD-CHIARI SYNDROME [None]
  - DIARRHOEA [None]
  - HAEMATOCHEZIA [None]
  - HEPATIC ENCEPHALOPATHY [None]
  - HEPATIC FAILURE [None]
  - HEPATIC VEIN THROMBOSIS [None]
  - HEPATOCELLULAR DAMAGE [None]
  - HEPATORENAL SYNDROME [None]
  - LOSS OF CONSCIOUSNESS [None]
  - MALAISE [None]
  - METABOLIC ACIDOSIS [None]
  - OLIGURIA [None]
  - PLEURAL EFFUSION [None]
  - PORTAL VEIN THROMBOSIS [None]
  - SHOCK [None]
  - SINUS TACHYCARDIA [None]
  - THROMBOCYTOPENIA [None]
  - VOMITING [None]
